FAERS Safety Report 22067117 (Version 1)
Quarter: 2023Q1

REPORT INFORMATION
  Report Type: Spontaneous
  Country: US (occurrence: US)
  Receive Date: 20230307
  Receipt Date: 20230307
  Transmission Date: 20230417
  Serious: No
  Sender: FDA-Public Use
  Company Number: US-002147023-NVSC2023US049013

PATIENT

DRUGS (1)
  1. MOMETASONE FUROATE [Suspect]
     Active Substance: MOMETASONE FUROATE
     Indication: Product used for unknown indication
     Dosage: UNK, BID
     Route: 061

REACTIONS (5)
  - Dermatitis atopic [Unknown]
  - Skin exfoliation [Unknown]
  - Rash erythematous [Unknown]
  - Rash [Unknown]
  - Drug ineffective [Unknown]
